FAERS Safety Report 6437261-3 (Version None)
Quarter: 2009Q4

REPORT INFORMATION
  Report Type: 
  Country: None (occurrence: None)
  Receive Date: 20091103
  Receipt Date: 20090806
  Transmission Date: 20100525
  Serious: Yes (Other)
  Sender: FDA-Public Use
  Company Number: DSA_40554_2009

PATIENT
  Sex: Male

DRUGS (2)
  1. ATIVAN [Suspect]
  2. NARDIL [Suspect]

REACTIONS (2)
  - OVERDOSE [None]
  - SUICIDAL IDEATION [None]
